FAERS Safety Report 16041921 (Version 1)
Quarter: 2019Q1

REPORT INFORMATION
  Report Type: Spontaneous
  Country: US (occurrence: US)
  Receive Date: 20190306
  Receipt Date: 20190306
  Transmission Date: 20190418
  Serious: No
  Sender: FDA-Public Use
  Company Number: US-AKORN PHARMACEUTICALS-2018AKN00722

PATIENT
  Age: 17 Year
  Sex: Male
  Weight: 77.1 kg

DRUGS (1)
  1. MYORISAN [Suspect]
     Active Substance: ISOTRETINOIN
     Indication: ACNE
     Dosage: 40 MG, 2X/DAY
     Route: 048
     Dates: start: 20180210, end: 20180516

REACTIONS (5)
  - Myalgia [Unknown]
  - Arthralgia [Unknown]
  - Dry eye [Unknown]
  - Dry skin [Unknown]
  - Lip dry [Unknown]

NARRATIVE: CASE EVENT DATE: 20180503
